FAERS Safety Report 11095412 (Version 1)
Quarter: 2015Q2

REPORT INFORMATION
  Report Type: Other
  Country: GB (occurrence: GB)
  Receive Date: 20150506
  Receipt Date: 20150506
  Transmission Date: 20150821
  Serious: Yes (Other)
  Sender: FDA-Public Use
  Company Number: GB-MYLANLABS-2015M1013817

PATIENT

DRUGS (14)
  1. FLUCLOXACILLIN [Concomitant]
     Active Substance: FLUCLOXACILLIN
     Dosage: 1 DF, QID
     Dates: start: 20150129, end: 20150205
  2. BENZYDAMINE HYDROCHLORIDE [Concomitant]
     Active Substance: BENZYDAMINE HYDROCHLORIDE
     Dosage: 15 ML, Q3H
     Dates: start: 20150413
  3. IBUPROFEN. [Concomitant]
     Active Substance: IBUPROFEN
     Dosage: 1 DF, TID (APPLY 3 TIMES A DAY)
     Dates: start: 20130123
  4. ASPIRIN                            /00002701/ [Concomitant]
     Active Substance: ASPIRIN
     Dosage: 1 DF, QD
     Dates: start: 20150409
  5. TILDIEM [Concomitant]
     Active Substance: DILTIAZEM HYDROCHLORIDE
     Dosage: 1 DF, BID
     Dates: start: 20150408
  6. BENDROFLUMETHIAZIDE [Concomitant]
     Active Substance: BENDROFLUMETHIAZIDE
     Dosage: 1 DF, QD
     Dates: start: 20141215
  7. GAVISCON [Concomitant]
     Active Substance: ALUMINUM HYDROXIDE\MAGNESIUM CARBONATE
     Dosage: 20 ML, QID (ANISEED)
     Dates: start: 20141215
  8. METRONIDAZOLE. [Concomitant]
     Active Substance: METRONIDAZOLE
     Dosage: 1 DF, TID
     Dates: start: 20150129, end: 20150205
  9. NICORANDIL [Concomitant]
     Active Substance: NICORANDIL
     Dosage: 1 DF, BID
     Dates: start: 20150409
  10. CAPECITABINE. [Suspect]
     Active Substance: CAPECITABINE
     Dosage: UNK
     Dates: start: 20150413
  11. ATENOLOL. [Concomitant]
     Active Substance: ATENOLOL
     Dosage: 1 DF, QD
     Dates: start: 20141215, end: 20150408
  12. CODEINE PHOSPHATE [Concomitant]
     Active Substance: CODEINE PHOSPHATE
     Dosage: 1 TO 2 TABLETS EVERY FOUR HOURS WHEN REQUIRED.
     Dates: start: 20150209, end: 20150210
  13. PARACETAMOL [Concomitant]
     Active Substance: ACETAMINOPHEN
     Dosage: 2 DF, QID (TAKE ONE OR TWO FOUR TIMES DAILY)
     Dates: start: 20141215
  14. TAMSULOSIN HYDROCHLORIDE. [Concomitant]
     Active Substance: TAMSULOSIN HYDROCHLORIDE
     Dosage: 1 DF, QD
     Dates: start: 20141215

REACTIONS (1)
  - Arteriospasm coronary [Recovered/Resolved]

NARRATIVE: CASE EVENT DATE: 20150413
